FAERS Safety Report 19230147 (Version 1)
Quarter: 2021Q2

REPORT INFORMATION
  Report Type: Spontaneous
  Country: US (occurrence: US)
  Receive Date: 20210506
  Receipt Date: 20210506
  Transmission Date: 20210717
  Serious: No
  Sender: FDA-Public Use
  Company Number: US-SA-2021SA149727

PATIENT

DRUGS (2)
  1. SELSUN BLUE 2?IN?1 [Suspect]
     Active Substance: SELENIUM SULFIDE
     Indication: DANDRUFF
  2. SELSUN BLUE 2?IN?1 [Suspect]
     Active Substance: SELENIUM SULFIDE
     Indication: DRY SKIN

REACTIONS (1)
  - Eye irritation [Unknown]
